FAERS Safety Report 25147403 (Version 1)
Quarter: 2025Q2

REPORT INFORMATION
  Report Type: Spontaneous
  Country: US (occurrence: US)
  Receive Date: 20250401
  Receipt Date: 20250401
  Transmission Date: 20250717
  Serious: Yes (Death, Hospitalization, Other)
  Sender: AMNEAL
  Company Number: US-AMNEAL PHARMACEUTICALS-2025-AMRX-01169

PATIENT
  Age: 20 Year
  Sex: Female

DRUGS (1)
  1. AMLODIPINE BESYLATE [Suspect]
     Active Substance: AMLODIPINE BESYLATE
     Indication: Product used for unknown indication
     Route: 048

REACTIONS (5)
  - Cardiac arrest [Fatal]
  - Multiple organ dysfunction syndrome [Not Recovered/Not Resolved]
  - Cardiac failure high output [Not Recovered/Not Resolved]
  - Vasoplegia syndrome [Not Recovered/Not Resolved]
  - Overdose [Unknown]
